FAERS Safety Report 18640984 (Version 3)
Quarter: 2021Q4

REPORT INFORMATION
  Report Type: Spontaneous
  Country: US (occurrence: US)
  Receive Date: 20201221
  Receipt Date: 20211008
  Transmission Date: 20220304
  Serious: Yes (Life-Threatening, Hospitalization, Other)
  Sender: FDA-Public Use
  Company Number: US-BIOGEN-2020BI00958614

PATIENT
  Age: 77 Year
  Sex: Female
  Weight: 53.57 kg

DRUGS (44)
  1. TECFIDERA [Suspect]
     Active Substance: DIMETHYL FUMARATE
     Indication: Relapsing-remitting multiple sclerosis
     Route: 048
     Dates: start: 20151022
  2. TECFIDERA [Suspect]
     Active Substance: DIMETHYL FUMARATE
     Dosage: MAINTENANCE DOSE
     Route: 048
     Dates: start: 20140630
  3. TECFIDERA [Suspect]
     Active Substance: DIMETHYL FUMARATE
     Dosage: STARTING DOSE
     Route: 048
     Dates: start: 2013
  4. TECFIDERA [Suspect]
     Active Substance: DIMETHYL FUMARATE
     Dosage: MAINTENANCE DOSE
     Route: 048
     Dates: end: 2020
  5. TECFIDERA [Suspect]
     Active Substance: DIMETHYL FUMARATE
     Route: 065
     Dates: start: 20130101
  6. ADVAIR DISKUS [Concomitant]
     Active Substance: FLUTICASONE PROPIONATE\SALMETEROL XINAFOATE
     Indication: Product used for unknown indication
     Route: 065
  7. ALBUTEROL [Concomitant]
     Active Substance: ALBUTEROL
     Indication: Product used for unknown indication
     Route: 065
  8. CILOSTAZOL [Concomitant]
     Active Substance: CILOSTAZOL
     Indication: Product used for unknown indication
     Route: 065
  9. FERROUS SULFATE [Concomitant]
     Active Substance: FERROUS SULFATE
     Indication: Product used for unknown indication
     Route: 065
  10. GABAPENTIN [Concomitant]
     Active Substance: GABAPENTIN
     Indication: Product used for unknown indication
     Route: 065
  11. NAPROXEN [Concomitant]
     Active Substance: NAPROXEN
     Indication: Product used for unknown indication
     Route: 065
  12. NASONEX [Concomitant]
     Active Substance: MOMETASONE FUROATE
     Indication: Product used for unknown indication
     Route: 065
  13. PLAVIX [Concomitant]
     Active Substance: CLOPIDOGREL BISULFATE
     Indication: Product used for unknown indication
     Route: 065
  14. PLAVIX [Concomitant]
     Active Substance: CLOPIDOGREL BISULFATE
     Route: 048
  15. PRAVASTATIN [Concomitant]
     Active Substance: PRAVASTATIN
     Indication: Product used for unknown indication
     Route: 065
  16. SINGULAIR [Concomitant]
     Active Substance: MONTELUKAST SODIUM
     Indication: Product used for unknown indication
     Route: 065
  17. TIZANIDINE [Concomitant]
     Active Substance: TIZANIDINE
     Indication: Product used for unknown indication
     Route: 065
  18. XALATAN [Concomitant]
     Active Substance: LATANOPROST
     Indication: Product used for unknown indication
     Route: 065
  19. XALATAN [Concomitant]
     Active Substance: LATANOPROST
     Dosage: 1 DROP AT BEDTIME INTO BOTH EYES
     Route: 047
  20. ZOLOFT [Concomitant]
     Active Substance: SERTRALINE HYDROCHLORIDE
     Indication: Product used for unknown indication
     Route: 065
  21. ZYRTEC [Concomitant]
     Active Substance: CETIRIZINE HYDROCHLORIDE
     Indication: Product used for unknown indication
     Route: 065
  22. ZYRTEC [Concomitant]
     Active Substance: CETIRIZINE HYDROCHLORIDE
     Route: 048
  23. ASPIRIN [Concomitant]
     Active Substance: ASPIRIN
     Indication: Product used for unknown indication
     Route: 065
  24. TYLENOL [Concomitant]
     Active Substance: ACETAMINOPHEN
     Indication: Pain
     Dosage: 2 TABLETS BY MOUTH EVERY 6 HOURS AS NEEDED
     Route: 048
  25. PROVENTIL [Concomitant]
     Active Substance: ALBUTEROL
     Indication: Dyspnoea
     Route: 065
  26. LIPITOR [Concomitant]
     Active Substance: ATORVASTATIN CALCIUM
     Indication: Product used for unknown indication
     Route: 048
  27. COLACE [Concomitant]
     Active Substance: DOCUSATE SODIUM
     Indication: Product used for unknown indication
     Route: 048
  28. ZITHROMAX [Concomitant]
     Active Substance: AZITHROMYCIN DIHYDRATE
     Indication: Product used for unknown indication
     Route: 065
  29. TOVIAZ [Concomitant]
     Active Substance: FESOTERODINE FUMARATE
     Indication: Product used for unknown indication
     Route: 048
  30. BREO ELLIPTA [Concomitant]
     Active Substance: FLUTICASONE FUROATE\VILANTEROL TRIFENATATE
     Indication: Product used for unknown indication
     Route: 065
  31. MUCINEX [Concomitant]
     Active Substance: GUAIFENESIN
     Indication: Product used for unknown indication
     Route: 065
  32. LIDODERM [Concomitant]
     Active Substance: LIDOCAINE
     Indication: Product used for unknown indication
     Route: 061
  33. Theragan [Concomitant]
     Indication: Product used for unknown indication
     Route: 065
  34. PROTONIX [Concomitant]
     Active Substance: PANTOPRAZOLE SODIUM
     Indication: Product used for unknown indication
     Route: 048
  35. SENOKOT [Concomitant]
     Active Substance: SENNOSIDES
     Indication: Constipation
     Route: 048
  36. SPIRIVA RESPIMAT [Concomitant]
     Active Substance: TIOTROPIUM BROMIDE
     Indication: Product used for unknown indication
     Route: 065
  37. TESSALON [Concomitant]
     Active Substance: BENZONATATE
     Indication: Cough
     Dosage: AS NEEDED FOR COUGH
     Route: 048
  38. Flovent FHA [Concomitant]
     Indication: Product used for unknown indication
     Dosage: 1 PUFF TWICE A DAY
     Route: 065
  39. MOTRIN [Concomitant]
     Active Substance: IBUPROFEN
     Indication: Product used for unknown indication
     Route: 065
  40. REMERON [Concomitant]
     Active Substance: MIRTAZAPINE
     Indication: Product used for unknown indication
     Route: 048
  41. NEURONTIN [Concomitant]
     Active Substance: GABAPENTIN
     Indication: Product used for unknown indication
     Route: 065
  42. NEURONTIN [Concomitant]
     Active Substance: GABAPENTIN
     Route: 048
  43. VITAMIN D3 [Concomitant]
     Active Substance: CHOLECALCIFEROL
     Indication: Product used for unknown indication
     Route: 048
  44. NICOTINE [Concomitant]
     Active Substance: NICOTINE
     Indication: Product used for unknown indication
     Route: 065

REACTIONS (5)
  - Lung neoplasm malignant [Not Recovered/Not Resolved]
  - Pneumothorax [Unknown]
  - Muscular weakness [Unknown]
  - Fall [Recovered/Resolved]
  - Balance disorder [Unknown]

NARRATIVE: CASE EVENT DATE: 20200901
